FAERS Safety Report 7391716-6 (Version None)
Quarter: 2011Q2

REPORT INFORMATION
  Report Type: 
  Country: None (occurrence: None)
  Receive Date: 20110404
  Receipt Date: 20110329
  Transmission Date: 20111010
  Serious: Yes (Death, Other)
  Sender: FDA-Public Use
  Company Number: PHHY2011DK26010

PATIENT

DRUGS (1)
  1. FLUOXETINE [Suspect]
     Route: 064

REACTIONS (5)
  - CARDIAC FAILURE [None]
  - PULMONARY OEDEMA [None]
  - HAEMORRHAGE [None]
  - PULMONARY HYPERTENSION [None]
  - DRUG EXPOSURE DURING PREGNANCY [None]
